FAERS Safety Report 10324102 (Version 2)
Quarter: 2015Q1

REPORT INFORMATION
  Report Type: Other
  Country: US (occurrence: US)
  Receive Date: 20140720
  Receipt Date: 20150320
  Transmission Date: 20150720
  Serious: Yes (Hospitalization, Other)
  Sender: FDA-Public Use
  Company Number: US-GSKPPD-2014GSK020648

PATIENT
  Age: 61 Year
  Sex: Male

DRUGS (7)
  1. LISINOPRIL. [Concomitant]
     Active Substance: LISINOPRIL
  2. COUMADINE [Concomitant]
     Active Substance: WARFARIN SODIUM
     Dosage: EVERY OTHER DAY
  3. ISOPTIN SR [Concomitant]
     Active Substance: VERAPAMIL HYDROCHLORIDE
  4. LASIX [Concomitant]
     Active Substance: FUROSEMIDE
     Route: 048
  5. AVANDIA [Suspect]
     Active Substance: ROSIGLITAZONE MALEATE
     Indication: DIABETES MELLITUS
     Dosage: DATES OF AVANDIA USE COULD NOT BE CONFIRMED IN RECORDS REVIEWED.
     Route: 048
     Dates: end: 2008
  6. COUMADINE [Concomitant]
     Active Substance: WARFARIN SODIUM
     Dosage: EVERY OTHER DAY
  7. TENORMIN [Concomitant]
     Active Substance: ATENOLOL

REACTIONS (1)
  - Cardiac failure congestive [Recovered/Resolved]

NARRATIVE: CASE EVENT DATE: 20080229
